FAERS Safety Report 8364334-0 (Version None)
Quarter: 2012Q2

REPORT INFORMATION
  Report Type: 
  Country: None (occurrence: None)
  Receive Date: 20120516
  Receipt Date: 20120515
  Transmission Date: 20120825
  Serious: No
  Sender: FDA-Public Use
  Company Number: US-PFIZER INC-2012118379

PATIENT
  Sex: Female
  Weight: 113 kg

DRUGS (5)
  1. SYNTHROID [Concomitant]
     Dosage: UNK
  2. PREMARIN [Concomitant]
     Dosage: UNK
  3. SINGULAIR [Concomitant]
     Dosage: UNK
  4. EFFEXOR XR [Suspect]
     Indication: ANXIETY
     Dosage: 150 MG, 1X/DAY
     Route: 048
  5. ZANTAC [Concomitant]
     Dosage: UNK

REACTIONS (2)
  - DIARRHOEA [None]
  - MALAISE [None]
